FAERS Safety Report 6515166-7 (Version None)
Quarter: 2009Q4

REPORT INFORMATION
  Report Type: 
  Country: None (occurrence: None)
  Receive Date: 20091223
  Receipt Date: 20091214
  Transmission Date: 20100525
  Serious: Yes (Other)
  Sender: FDA-Public Use
  Company Number: US-JNJFOC-20091101872

PATIENT
  Sex: Male
  Weight: 63.05 kg

DRUGS (22)
  1. REMICADE [Suspect]
     Indication: PSORIASIS
     Dates: start: 20070228, end: 20090917
  2. ALBUTEROL [Concomitant]
     Indication: CHRONIC OBSTRUCTIVE PULMONARY DISEASE
  3. WARFARIN SODIUM [Concomitant]
  4. LYRICA [Concomitant]
  5. FOLIC ACID [Concomitant]
  6. NOVOLOG [Concomitant]
  7. DIGOXIN [Concomitant]
  8. DILTIAZEM [Concomitant]
  9. PACERONE [Concomitant]
  10. TRAMADOL HCL [Concomitant]
  11. ALLOPURINOL [Concomitant]
  12. HYDROCODONE [Concomitant]
  13. PLAVIX [Concomitant]
  14. LISINOPRIL [Concomitant]
  15. TRICOR [Concomitant]
  16. UNSPECIFIED NEBULIZER [Concomitant]
  17. METHOTREXATE [Concomitant]
  18. GABAPENTIN [Concomitant]
  19. DOXAZOSIN MESYLATE [Concomitant]
  20. LANOXIN [Concomitant]
  21. TRIMETHOPRIM [Concomitant]
  22. SULFAMETHOXAZOLE [Concomitant]

REACTIONS (1)
  - CHRONIC MYELOID LEUKAEMIA [None]
